FAERS Safety Report 7246545-0 (Version None)
Quarter: 2011Q1

REPORT INFORMATION
  Report Type: 
  Country: None (occurrence: None)
  Receive Date: 20110127
  Receipt Date: 20110121
  Transmission Date: 20110831
  Serious: Yes (Other)
  Sender: FDA-Public Use
  Company Number: NO-BIOGENIDEC-2011BI000529

PATIENT
  Age: 50 Year
  Sex: Female

DRUGS (3)
  1. MULTIVITAMIN [Concomitant]
  2. TYSABRI [Suspect]
     Indication: RELAPSING-REMITTING MULTIPLE SCLEROSIS
     Route: 042
     Dates: start: 20080219, end: 20101208
  3. MINERAL TAB [Concomitant]

REACTIONS (1)
  - MALIGNANT MELANOMA IN SITU [None]
